FAERS Safety Report 11315924 (Version 1)
Quarter: 2015Q3

REPORT INFORMATION
  Report Type: Spontaneous
  Country: US (occurrence: None)
  Receive Date: 20150724
  Receipt Date: 20150724
  Transmission Date: 20151125
  Serious: Yes (Hospitalization, Other)
  Sender: FDA-Public Use
  Company Number: ADR-2015-01382

PATIENT
  Sex: Male

DRUGS (1)
  1. BACLOFEN INTRATHECAL [Suspect]
     Active Substance: BACLOFEN
     Indication: MUSCLE SPASTICITY

REACTIONS (9)
  - Sepsis [None]
  - Insomnia [None]
  - Cerebrospinal fluid leakage [None]
  - Inadequate aseptic technique in use of product [None]
  - Conversion disorder [None]
  - Loss of consciousness [None]
  - Screaming [None]
  - Inappropriate affect [None]
  - Device dislocation [None]
